FAERS Safety Report 17774255 (Version 1)
Quarter: 2020Q2

REPORT INFORMATION
  Report Type: Spontaneous
  Country: AT (occurrence: AT)
  Receive Date: 20200513
  Receipt Date: 20200513
  Transmission Date: 20200714
  Serious: Yes (Hospitalization)
  Sender: FDA-Public Use
  Company Number: AT-TAIHO ONCOLOGY  INC-IM-2020-00183

PATIENT
  Age: 71 Year
  Sex: Male
  Weight: 58 kg

DRUGS (8)
  1. LIXIANA [Concomitant]
     Active Substance: EDOXABAN TOSYLATE
     Indication: SUBCLAVIAN VEIN THROMBOSIS
     Dosage: UNK
     Route: 048
  2. TORASEMIDE [Concomitant]
     Active Substance: TORSEMIDE
     Indication: OEDEMA
     Route: 048
  3. LONSURF [Suspect]
     Active Substance: TIPIRACIL HYDROCHLORIDE\TRIFLURIDINE
     Indication: OFF LABEL USE
  4. PANTOPRAZOLE SODIUM SESQUIHYDRATE [Concomitant]
     Active Substance: PANTOPRAZOLE SODIUM
     Indication: GASTROOESOPHAGEAL REFLUX DISEASE
     Dosage: UNK
     Route: 048
  5. LONSURF [Suspect]
     Active Substance: TIPIRACIL HYDROCHLORIDE\TRIFLURIDINE
     Indication: PANCREATIC CARCINOMA METASTATIC
     Dosage: 60MG (35MG/M2) BID, ON DAYS 1-5 AND 8-12 OF A 28-DAY-CYCLE
     Route: 048
     Dates: start: 20200110
  6. KREON [Concomitant]
     Active Substance: PANCRELIPASE
     Indication: PANCREATIC FAILURE
     Dosage: UNK
     Route: 048
  7. DOMINAL [Concomitant]
     Indication: SLEEP DISORDER
  8. DOMINAL [Concomitant]
     Indication: PROPHYLAXIS
     Dosage: UNK
     Route: 048

REACTIONS (9)
  - Cholangitis infective [Unknown]
  - Cholestasis [Unknown]
  - Gastritis erosive [Unknown]
  - Gastric haemorrhage [Unknown]
  - Jaundice [Unknown]
  - Off label use [Recovered/Resolved]
  - Inflammation [Unknown]
  - Anaemia [Unknown]
  - Malignant neoplasm progression [Unknown]

NARRATIVE: CASE EVENT DATE: 20200110
